FAERS Safety Report 14177451 (Version 1)
Quarter: 2017Q4

REPORT INFORMATION
  Report Type: Report from Study
  Country: US (occurrence: US)
  Receive Date: 20171110
  Receipt Date: 20171110
  Transmission Date: 20180321
  Serious: Yes (Hospitalization, Other)
  Sender: FDA-Public Use
  Company Number: US-ASTRAZENECA-2016SE76730

PATIENT
  Age: 62 Year
  Sex: Female
  Weight: 85.9 kg

DRUGS (59)
  1. ACALABRUTINIB. [Suspect]
     Active Substance: ACALABRUTINIB
     Indication: NON-SMALL CELL LUNG CANCER
     Route: 048
     Dates: start: 20160108
  2. ACALABRUTINIB. [Suspect]
     Active Substance: ACALABRUTINIB
     Indication: NON-SMALL CELL LUNG CANCER
     Route: 048
     Dates: start: 20160113
  3. ACALABRUTINIB. [Suspect]
     Active Substance: ACALABRUTINIB
     Indication: NON-SMALL CELL LUNG CANCER
     Route: 048
     Dates: start: 20160130
  4. ACALABRUTINIB. [Suspect]
     Active Substance: ACALABRUTINIB
     Indication: NON-SMALL CELL LUNG CANCER
     Route: 048
     Dates: start: 20160204
  5. LORAZEPAM. [Concomitant]
     Active Substance: LORAZEPAM
     Indication: NAUSEA
     Dosage: 0.5MG AS REQUIRED
     Route: 048
     Dates: start: 20141017, end: 20160316
  6. FLUTICASONE. [Concomitant]
     Active Substance: FLUTICASONE
     Indication: RHINORRHOEA
     Dosage: 1.0DF AS REQUIRED
     Route: 045
     Dates: start: 20141022, end: 20160316
  7. DEXTROMETHORPHAN [Concomitant]
     Active Substance: DEXTROMETHORPHAN
     Indication: COUGH
     Dosage: 100MG / 5ML, PRN
     Route: 048
     Dates: start: 20160202
  8. TRAZODONE [Concomitant]
     Active Substance: TRAZODONE HYDROCHLORIDE
     Indication: INSOMNIA
     Route: 048
     Dates: start: 20150619, end: 20160316
  9. ACALABRUTINIB. [Suspect]
     Active Substance: ACALABRUTINIB
     Indication: NON-SMALL CELL LUNG CANCER
     Route: 048
     Dates: start: 20160114
  10. ACALABRUTINIB. [Suspect]
     Active Substance: ACALABRUTINIB
     Indication: NON-SMALL CELL LUNG CANCER
     Route: 048
     Dates: start: 20160114
  11. ACALABRUTINIB. [Suspect]
     Active Substance: ACALABRUTINIB
     Indication: NON-SMALL CELL LUNG CANCER
     Route: 048
     Dates: start: 20160129
  12. ACALABRUTINIB. [Suspect]
     Active Substance: ACALABRUTINIB
     Indication: NON-SMALL CELL LUNG CANCER
     Route: 048
     Dates: start: 20160202
  13. ACALABRUTINIB. [Suspect]
     Active Substance: ACALABRUTINIB
     Indication: NON-SMALL CELL LUNG CANCER
     Route: 048
     Dates: start: 20160203
  14. ACALABRUTINIB. [Suspect]
     Active Substance: ACALABRUTINIB
     Indication: NON-SMALL CELL LUNG CANCER
     Route: 048
     Dates: start: 20160203
  15. ACALABRUTINIB. [Suspect]
     Active Substance: ACALABRUTINIB
     Indication: NON-SMALL CELL LUNG CANCER
     Route: 048
     Dates: start: 20160204
  16. BENZONATATE. [Concomitant]
     Active Substance: BENZONATATE
     Indication: COUGH
     Dosage: 100.0MG AS REQUIRED
     Route: 048
     Dates: start: 20151204, end: 20160316
  17. ACALABRUTINIB. [Suspect]
     Active Substance: ACALABRUTINIB
     Indication: NON-SMALL CELL LUNG CANCER
     Route: 048
     Dates: start: 20160108
  18. ACALABRUTINIB. [Suspect]
     Active Substance: ACALABRUTINIB
     Indication: NON-SMALL CELL LUNG CANCER
     Route: 048
     Dates: start: 20160112
  19. ACALABRUTINIB. [Suspect]
     Active Substance: ACALABRUTINIB
     Indication: NON-SMALL CELL LUNG CANCER
     Route: 048
     Dates: start: 20160131
  20. ACALABRUTINIB. [Suspect]
     Active Substance: ACALABRUTINIB
     Indication: NON-SMALL CELL LUNG CANCER
     Route: 048
     Dates: start: 20160201
  21. PEMBROLIZUMAB. [Suspect]
     Active Substance: PEMBROLIZUMAB
     Indication: NON-SMALL CELL LUNG CANCER
     Route: 042
  22. GLYBURIDE. [Concomitant]
     Active Substance: GLYBURIDE
     Indication: DIABETES MELLITUS
     Route: 048
     Dates: start: 20081013
  23. ASPIRIN. [Concomitant]
     Active Substance: ASPIRIN
     Indication: PAIN
     Route: 048
     Dates: start: 2008
  24. PHENYLEPHRINE [Concomitant]
     Active Substance: PHENYLEPHRINE\PHENYLEPHRINE HYDROCHLORIDE
     Indication: COUGH
     Dosage: 200.0MG AS REQUIRED
     Route: 048
     Dates: start: 20160202
  25. ACALABRUTINIB. [Suspect]
     Active Substance: ACALABRUTINIB
     Indication: NON-SMALL CELL LUNG CANCER
     Route: 048
     Dates: start: 20160111
  26. ACALABRUTINIB. [Suspect]
     Active Substance: ACALABRUTINIB
     Indication: NON-SMALL CELL LUNG CANCER
     Route: 048
     Dates: start: 20160202
  27. LOPERAMIDE [Concomitant]
     Active Substance: LOPERAMIDE
     Indication: DIARRHOEA
     Dosage: 2.0MG AS REQUIRED
     Route: 048
     Dates: start: 20160122
  28. VITAMINS NOS [Concomitant]
     Active Substance: VITAMINS
     Indication: SUPPLEMENTATION THERAPY
     Route: 048
     Dates: start: 20140806
  29. RAMIPRIL. [Concomitant]
     Active Substance: RAMIPRIL
     Indication: HYPERTENSION
     Route: 048
     Dates: start: 20080826, end: 20160218
  30. NITROGLYCERIN. [Concomitant]
     Active Substance: NITROGLYCERIN
     Indication: CHEST PAIN
     Dosage: 0.4MG AS REQUIRED
     Route: 060
     Dates: start: 20080826
  31. MAGNESIUM OXIDE. [Concomitant]
     Active Substance: MAGNESIUM OXIDE
     Indication: PROPHYLAXIS
     Route: 048
     Dates: start: 20130123
  32. ACALABRUTINIB. [Suspect]
     Active Substance: ACALABRUTINIB
     Indication: NON-SMALL CELL LUNG CANCER
     Route: 048
     Dates: start: 20160109
  33. ACALABRUTINIB. [Suspect]
     Active Substance: ACALABRUTINIB
     Indication: NON-SMALL CELL LUNG CANCER
     Route: 048
     Dates: start: 20160113
  34. ACALABRUTINIB. [Suspect]
     Active Substance: ACALABRUTINIB
     Indication: NON-SMALL CELL LUNG CANCER
     Route: 048
     Dates: start: 20160201
  35. PEMBROLIZUMAB. [Suspect]
     Active Substance: PEMBROLIZUMAB
     Indication: NON-SMALL CELL LUNG CANCER
     Route: 042
     Dates: start: 20160108, end: 20160108
  36. METFORMIN [Concomitant]
     Active Substance: METFORMIN HYDROCHLORIDE
     Indication: DIABETES MELLITUS
     Route: 048
     Dates: start: 20160122
  37. EMLA [Concomitant]
     Active Substance: LIDOCAINE\PRILOCAINE
     Indication: APPLICATION SITE ACNE
     Dosage: 2.5% AS REQUIRED
     Route: 061
     Dates: start: 20150821
  38. ACALABRUTINIB. [Suspect]
     Active Substance: ACALABRUTINIB
     Indication: NON-SMALL CELL LUNG CANCER
     Route: 048
     Dates: start: 20160109
  39. ACALABRUTINIB. [Suspect]
     Active Substance: ACALABRUTINIB
     Indication: NON-SMALL CELL LUNG CANCER
     Route: 048
     Dates: start: 20160111
  40. ACALABRUTINIB. [Suspect]
     Active Substance: ACALABRUTINIB
     Indication: NON-SMALL CELL LUNG CANCER
     Route: 048
     Dates: start: 20160130
  41. ACALABRUTINIB. [Suspect]
     Active Substance: ACALABRUTINIB
     Indication: NON-SMALL CELL LUNG CANCER
     Route: 048
     Dates: start: 20160131
  42. PROCHLORPERAZINE. [Concomitant]
     Active Substance: PROCHLORPERAZINE
     Indication: NAUSEA
     Dosage: 10.0MG AS REQUIRED
     Route: 048
     Dates: start: 20151010
  43. ISOSORBIDE MONONITRATE. [Concomitant]
     Active Substance: ISOSORBIDE MONONITRATE
     Indication: CORONARY ARTERY DISEASE
     Route: 048
     Dates: start: 20091230
  44. PIOGLITAZONE. [Concomitant]
     Active Substance: PIOGLITAZONE
     Indication: DIABETES MELLITUS
     Route: 048
     Dates: start: 20080826
  45. GLYBURIDE. [Concomitant]
     Active Substance: GLYBURIDE
     Indication: DIABETES MELLITUS
     Dosage: 1.5 TABS AT BREAKFAST
     Route: 048
     Dates: start: 20150129
  46. FLUTICASONE. [Concomitant]
     Active Substance: FLUTICASONE
     Indication: NASAL CONGESTION
     Dosage: 1.0DF AS REQUIRED
     Route: 045
     Dates: start: 20141022, end: 20160316
  47. ACALABRUTINIB. [Suspect]
     Active Substance: ACALABRUTINIB
     Indication: NON-SMALL CELL LUNG CANCER
     Route: 048
     Dates: start: 20160110
  48. ACALABRUTINIB. [Suspect]
     Active Substance: ACALABRUTINIB
     Indication: NON-SMALL CELL LUNG CANCER
     Route: 048
     Dates: start: 20160110
  49. ACALABRUTINIB. [Suspect]
     Active Substance: ACALABRUTINIB
     Indication: NON-SMALL CELL LUNG CANCER
     Route: 048
     Dates: start: 20160112
  50. ACALABRUTINIB. [Suspect]
     Active Substance: ACALABRUTINIB
     Indication: NON-SMALL CELL LUNG CANCER
     Route: 048
     Dates: start: 20160129
  51. GUAIFENESIN/CODEINE [Concomitant]
     Active Substance: CODEINE PHOSPHATE\GUAIFENESIN
     Indication: COUGH
     Dosage: 10.0ML AS REQUIRED
     Route: 048
     Dates: start: 20151210, end: 20160202
  52. GUAIFENESIN. [Concomitant]
     Active Substance: GUAIFENESIN
     Indication: COUGH
     Dosage: 10MG / 5ML, PRN
     Route: 048
     Dates: start: 20160202
  53. ACALABRUTINIB. [Suspect]
     Active Substance: ACALABRUTINIB
     Indication: NON-SMALL CELL LUNG CANCER
     Route: 048
     Dates: start: 20160109
  54. ACALABRUTINIB. [Suspect]
     Active Substance: ACALABRUTINIB
     Indication: NON-SMALL CELL LUNG CANCER
     Route: 048
     Dates: start: 20160205
  55. METOPROLOL SUCCINATE. [Concomitant]
     Active Substance: METOPROLOL SUCCINATE
     Indication: HYPERTENSION
     Route: 048
     Dates: start: 20100603
  56. ATORVASTATIN [Concomitant]
     Active Substance: ATORVASTATIN
     Indication: CORONARY ARTERY DISEASE
     Route: 048
     Dates: start: 20090303, end: 20160208
  57. ALBUTEROL. [Concomitant]
     Active Substance: ALBUTEROL
     Indication: COUGH
     Dosage: 108.0UG AS REQUIRED
     Route: 055
     Dates: start: 20160202, end: 20160316
  58. DEXTROMETHORPHAN [Concomitant]
     Active Substance: DEXTROMETHORPHAN
     Indication: COUGH
     Dosage: 200.0MG AS REQUIRED
     Route: 048
     Dates: start: 20160202, end: 20160316
  59. ACETAMINOPHEN. [Concomitant]
     Active Substance: ACETAMINOPHEN
     Indication: ARTHRALGIA
     Dosage: 325.0MG AS REQUIRED
     Route: 048
     Dates: start: 20160108

REACTIONS (4)
  - Vomiting [Recovered/Resolved]
  - Syncope [Recovered/Resolved]
  - Nausea [Recovered/Resolved]
  - Dehydration [Recovered/Resolved]

NARRATIVE: CASE EVENT DATE: 20160205
